FAERS Safety Report 23836094 (Version 6)
Quarter: 2024Q4

REPORT INFORMATION
  Report Type: Spontaneous
  Country: JP (occurrence: JP)
  Receive Date: 20240509
  Receipt Date: 20241218
  Transmission Date: 20250115
  Serious: Yes (Life-Threatening, Hospitalization, Other)
  Sender: PFIZER
  Company Number: JP-MLMSERVICE-20240429-PI042726-00270-1

PATIENT
  Age: 68 Year
  Sex: Female

DRUGS (12)
  1. DALTEPARIN SODIUM [Suspect]
     Active Substance: DALTEPARIN SODIUM
     Indication: Anticoagulant therapy
     Dosage: UNK
  2. DALTEPARIN SODIUM [Suspect]
     Active Substance: DALTEPARIN SODIUM
     Indication: Haemodialysis
  3. METHYLPREDNISOLONE SODIUM SUCCINATE [Suspect]
     Active Substance: METHYLPREDNISOLONE SODIUM SUCCINATE
     Indication: Vasculitis
     Dosage: 500 MG, 1X/DAY (PULSE)
     Route: 042
  4. NAFAMOSTAT [Suspect]
     Active Substance: NAFAMOSTAT
     Indication: Haemodialysis
     Dosage: UNK
  5. NAFAMOSTAT [Suspect]
     Active Substance: NAFAMOSTAT
     Indication: Anticoagulant therapy
  6. PREDNISOLONE [Suspect]
     Active Substance: PREDNISOLONE
     Indication: Glomerulonephritis rapidly progressive
     Dosage: 1.0 MG/KG, ON HOSPITAL DAY 2
  7. PREDNISOLONE [Suspect]
     Active Substance: PREDNISOLONE
     Indication: Microscopic polyangiitis
  8. THROMBOMODULIN ALFA [Suspect]
     Active Substance: THROMBOMODULIN ALFA
     Indication: Disseminated intravascular coagulation
     Dosage: UNK
  9. PIPERACILLIN SODIUM\TAZOBACTAM SODIUM [Concomitant]
     Active Substance: PIPERACILLIN SODIUM\TAZOBACTAM SODIUM
     Indication: Device related infection
     Dosage: UNK
  10. CANDESARTAN [Concomitant]
     Active Substance: CANDESARTAN
     Indication: Blood pressure increased
     Dosage: UNK
  11. RITUXIMAB [Concomitant]
     Active Substance: RITUXIMAB
     Indication: Vasculitis
     Dosage: 500 MG, ONCE A WEEK, 4 TIMES
  12. AMLODIPINE [Concomitant]
     Active Substance: AMLODIPINE BESYLATE
     Indication: Blood pressure increased
     Dosage: UNK

REACTIONS (3)
  - Syncope [Unknown]
  - Abdominal wall haematoma [Recovered/Resolved]
  - Hypotension [Unknown]
